FAERS Safety Report 5611659-5 (Version None)
Quarter: 2008Q1

REPORT INFORMATION
  Report Type: 
  Country: None (occurrence: None)
  Receive Date: 20080201
  Receipt Date: 20080124
  Transmission Date: 20080703
  Serious: Yes (Other)
  Sender: FDA-Public Use
  Company Number: US-ABBOTT-08P-163-0434978-00

PATIENT
  Age: 49 Year
  Sex: Female
  Weight: 105.4 kg

DRUGS (6)
  1. VICODIN [Suspect]
     Indication: GINGIVAL PAIN
  2. VICOPROFEN [Suspect]
     Indication: GINGIVAL PAIN
     Route: 048
  3. ACETAMINOPHEN W/ CODEINE [Suspect]
     Indication: GINGIVAL PAIN
  4. IBUPROFEN [Suspect]
     Indication: GINGIVAL PAIN
  5. PEGINTERFERON ALFA-2B [Suspect]
     Indication: HEPATITIS C
     Dates: start: 20071027
  6. RIBAVIRIN [Suspect]
     Indication: HEPATITIS C
     Dates: start: 20071027

REACTIONS (15)
  - DECREASED APPETITE [None]
  - DIARRHOEA [None]
  - FAECAL INCONTINENCE [None]
  - FATIGUE [None]
  - FOOD CRAVING [None]
  - GINGIVAL INFECTION [None]
  - HEADACHE [None]
  - HEPATIC ENZYME INCREASED [None]
  - INFLUENZA [None]
  - LOOSE TOOTH [None]
  - ORAL HERPES [None]
  - RESPIRATORY TRACT CONGESTION [None]
  - RHINORRHOEA [None]
  - VOMITING [None]
  - WEIGHT DECREASED [None]
